FAERS Safety Report 21248440 (Version 1)
Quarter: 2022Q3

REPORT INFORMATION
  Report Type: Spontaneous
  Country: IN (occurrence: IN)
  Receive Date: 20220824
  Receipt Date: 20220824
  Transmission Date: 20221026
  Serious: Yes (Death, Other)
  Sender: FDA-Public Use
  Company Number: IN-SLATE RUN PHARMACEUTICALS-22IN001279

PATIENT

DRUGS (4)
  1. METOPROLOL SUCCINATE [Suspect]
     Active Substance: METOPROLOL SUCCINATE
     Indication: Maternal exposure during pregnancy
  2. PRAZOSIN [Concomitant]
     Active Substance: PRAZOSIN
     Indication: Maternal exposure during pregnancy
  3. LABETALOL [Concomitant]
     Active Substance: LABETALOL\LABETALOL HYDROCHLORIDE
     Indication: Maternal exposure during pregnancy
  4. AMLODIPINE [Concomitant]
     Active Substance: AMLODIPINE BESYLATE
     Indication: Maternal exposure during pregnancy

REACTIONS (4)
  - Rhabdomyoma [Fatal]
  - Foetal growth restriction [Unknown]
  - Low birth weight baby [Unknown]
  - Foetal exposure during pregnancy [Recovered/Resolved]
